FAERS Safety Report 6427961-3 (Version None)
Quarter: 2009Q4

REPORT INFORMATION
  Report Type: 
  Country: None (occurrence: None)
  Receive Date: 20091105
  Receipt Date: 20091031
  Transmission Date: 20100525
  Serious: Yes (Death, Other)
  Sender: FDA-Public Use
  Company Number: PHHY2009IN47483

PATIENT
  Age: 17 Year
  Sex: Female

DRUGS (1)
  1. ASUNRA [Suspect]
     Dosage: 500 MG/DAY (1 TAB 400 MG AND 1 TAB OF 100 MG)

REACTIONS (2)
  - HYPERGLYCAEMIA [None]
  - LOWER LIMB FRACTURE [None]
